FAERS Safety Report 6145323-3 (Version None)
Quarter: 2009Q2

REPORT INFORMATION
  Report Type: 
  Country: None (occurrence: None)
  Receive Date: 20090406
  Receipt Date: 20090403
  Transmission Date: 20091009
  Serious: Yes (Death)
  Sender: FDA-Public Use
  Company Number: VN-B.I. PHARMACEUTICALS,INC./RIDGEFIELD-2009-SG-00151SG

PATIENT
  Age: 56 Year
  Sex: Male

DRUGS (3)
  1. MOBIC [Suspect]
     Route: 030
  2. CURAM [Concomitant]
     Route: 042
  3. QUAMATEL [Concomitant]
     Route: 042

REACTIONS (1)
  - DEATH [None]
